FAERS Safety Report 6084765-1 (Version None)
Quarter: 2009Q1

REPORT INFORMATION
  Report Type: 
  Country: None (occurrence: None)
  Receive Date: 20090217
  Receipt Date: 20090202
  Transmission Date: 20090719
  Serious: Yes (Other)
  Sender: FDA-Public Use
  Company Number: 2009000301

PATIENT
  Age: 49 Year
  Sex: Male

DRUGS (3)
  1. TARCEVA [Suspect]
     Indication: BRONCHIAL CARCINOMA
     Dosage: (150 MG, QD), ORAL
     Route: 048
     Dates: start: 20081118, end: 20081201
  2. INIPOMP (PANTOPRAZOLE) [Concomitant]
  3. PREGABALIN [Concomitant]

REACTIONS (7)
  - CONVULSION [None]
  - DRUG TOXICITY [None]
  - FATIGUE [None]
  - MALIGNANT NEOPLASM PROGRESSION [None]
  - METASTASES TO CENTRAL NERVOUS SYSTEM [None]
  - NAUSEA [None]
  - VOMITING [None]
